FAERS Safety Report 14153877 (Version 1)
Quarter: 2017Q4

REPORT INFORMATION
  Report Type: Report from Study
  Country: None (occurrence: IE)
  Receive Date: 20171102
  Receipt Date: 20171102
  Transmission Date: 20180321
  Serious: Yes (Death, Other)
  Sender: FDA-Public Use
  Company Number: IE-ABBVIE-17P-229-2118895-00

PATIENT
  Age: 55 Year
  Sex: Female
  Weight: 61.6 kg

DRUGS (1)
  1. VENETOCLAX. [Suspect]
     Active Substance: VENETOCLAX
     Indication: CHRONIC LYMPHOCYTIC LEUKAEMIA
     Route: 048
     Dates: start: 20170131, end: 20170810

REACTIONS (3)
  - Chronic lymphocytic leukaemia [Fatal]
  - Richter^s syndrome [Fatal]
  - Central nervous system lesion [Unknown]

NARRATIVE: CASE EVENT DATE: 20170806
